FAERS Safety Report 17909716 (Version 1)
Quarter: 2020Q2

REPORT INFORMATION
  Report Type: Spontaneous
  Country: DE (occurrence: DE)
  Receive Date: 20200617
  Receipt Date: 20200617
  Transmission Date: 20200714
  Serious: Yes (Death, Hospitalization)
  Sender: FDA-Public Use
  Company Number: DE-BAUSCH-BL-2020-016938

PATIENT
  Age: 67 Year
  Sex: Male

DRUGS (3)
  1. DEXAMETHASONE. [Suspect]
     Active Substance: DEXAMETHASONE
     Indication: SPINAL CORD HAEMORRHAGE
  2. DEXAMETHASONE. [Suspect]
     Active Substance: DEXAMETHASONE
     Indication: EPENDYMOMA
     Dosage: HIGH-DOSE
     Route: 065
  3. DEXAMETHASONE. [Suspect]
     Active Substance: DEXAMETHASONE
     Indication: PARAPLEGIA

REACTIONS (9)
  - Legionella infection [Not Recovered/Not Resolved]
  - Acute respiratory distress syndrome [Not Recovered/Not Resolved]
  - Candida infection [Not Recovered/Not Resolved]
  - Staphylococcal infection [Recovered/Resolved]
  - Fungal sepsis [Fatal]
  - Pneumocystis jirovecii infection [Not Recovered/Not Resolved]
  - Disseminated cytomegaloviral infection [Not Recovered/Not Resolved]
  - Mucormycosis [Fatal]
  - Disseminated aspergillosis [Fatal]
